FAERS Safety Report 12432073 (Version 1)
Quarter: 2016Q2

REPORT INFORMATION
  Report Type: Spontaneous
  Country: US (occurrence: None)
  Receive Date: 20160602
  Receipt Date: 20160602
  Transmission Date: 20160815
  Serious: Yes (Hospitalization, Disabling, Other)
  Sender: FDA-Public Use
  Company Number: None

PATIENT
  Age: 55 Year
  Sex: Female
  Weight: 92.99 kg

DRUGS (3)
  1. CIPRO [Suspect]
     Active Substance: CIPROFLOXACIN HYDROCHLORIDE
     Indication: URINARY TRACT INFECTION
     Route: 048
     Dates: start: 20141122, end: 20141206
  2. GLIPIZIDE. [Concomitant]
     Active Substance: GLIPIZIDE
  3. METFORMIN [Concomitant]
     Active Substance: METFORMIN HYDROCHLORIDE

REACTIONS (17)
  - Muscular weakness [None]
  - Groin pain [None]
  - Joint swelling [None]
  - Blood glucose increased [None]
  - Diarrhoea [None]
  - Asthenia [None]
  - Fatigue [None]
  - Tendonitis [None]
  - Weight bearing difficulty [None]
  - Trigger finger [None]
  - Carpal tunnel syndrome [None]
  - Malaise [None]
  - Musculoskeletal pain [None]
  - Abasia [None]
  - Arthralgia [None]
  - Gastric disorder [None]
  - Irritable bowel syndrome [None]

NARRATIVE: CASE EVENT DATE: 20110630
